FAERS Safety Report 18582890 (Version 1)
Quarter: 2020Q4

REPORT INFORMATION
  Report Type: Spontaneous
  Country: FR (occurrence: FR)
  Receive Date: 20201205
  Receipt Date: 20201205
  Transmission Date: 20210114
  Serious: Yes (Other)
  Sender: FDA-Public Use
  Company Number: NVSC2020FR320604

PATIENT
  Age: 50 Year
  Sex: Male

DRUGS (1)
  1. IOPIDINE [Suspect]
     Active Substance: APRACLONIDINE HYDROCHLORIDE
     Indication: UVEITIC GLAUCOMA
     Dosage: 4 DRP, QD (OF 0.5% AND 0.1% SOLUTION)
     Route: 065
     Dates: start: 201712

REACTIONS (5)
  - Lacrimation increased [Unknown]
  - Hypersensitivity [Unknown]
  - Atrophy of globe [Unknown]
  - Incorrect dose administered [Unknown]
  - Dry eye [Unknown]
